FAERS Safety Report 5045240-6 (Version None)
Quarter: 2006Q3

REPORT INFORMATION
  Report Type: 
  Country: None (occurrence: None)
  Receive Date: 20060707
  Receipt Date: 20060530
  Transmission Date: 20061208
  Serious: Yes (Death, Life-Threatening)
  Sender: FDA-Public Use
  Company Number: 2006AP02496

PATIENT
  Age: 23097 Day
  Sex: Male
  Weight: 62.8 kg

DRUGS (7)
  1. IRESSA [Suspect]
     Indication: LUNG ADENOCARCINOMA STAGE IV
     Route: 048
     Dates: start: 20060429, end: 20060509
  2. OMEPRAL [Concomitant]
     Indication: GASTRIC ULCER
     Route: 048
     Dates: start: 20060122, end: 20060510
  3. OXYCONTIN [Concomitant]
     Indication: CANCER PAIN
     Route: 048
     Dates: start: 20060502, end: 20060510
  4. NAUZELIN [Concomitant]
     Indication: NAUSEA
     Route: 048
     Dates: start: 20060502, end: 20060510
  5. NOVAMIN [Concomitant]
     Indication: NAUSEA
     Route: 048
     Dates: start: 20060502, end: 20060510
  6. CARBOPLATIN [Concomitant]
     Dosage: 2 COURSES
     Dates: start: 20060202, end: 20060323
  7. PACLITAXEL [Concomitant]
     Dosage: 2 COURSES
     Dates: start: 20060202, end: 20060323

REACTIONS (9)
  - CARDIAC ARREST [None]
  - HYPERCALCAEMIA [None]
  - LUNG DISORDER [None]
  - METASTASES TO BONE [None]
  - PULMONARY FIBROSIS [None]
  - RENAL FAILURE ACUTE [None]
  - RENAL TUBULAR NECROSIS [None]
  - SPUTUM PURULENT [None]
  - STAPHYLOCOCCAL INFECTION [None]
